FAERS Safety Report 13257250 (Version 1)
Quarter: 2017Q1

REPORT INFORMATION
  Report Type: Spontaneous
  Country: US (occurrence: US)
  Receive Date: 20170221
  Receipt Date: 20170221
  Transmission Date: 20170428
  Serious: No
  Sender: FDA-Public Use
  Company Number: US-VALIDUS PHARMACEUTICALS LLC-US-2016VAL002967

PATIENT
  Sex: Male
  Weight: 88.5 kg

DRUGS (19)
  1. LASIX [Suspect]
     Active Substance: FUROSEMIDE
     Indication: DYSPNOEA
     Dosage: UNK
     Route: 042
  2. LASIX [Suspect]
     Active Substance: FUROSEMIDE
     Indication: OEDEMA PERIPHERAL
     Dosage: UNK
     Route: 041
  3. MAGNESIUM [Concomitant]
     Active Substance: MAGNESIUM
     Indication: CARDIAC FAILURE CONGESTIVE
     Dosage: UNK
  4. NASONEX [Concomitant]
     Active Substance: MOMETASONE FUROATE
     Indication: RHINITIS ALLERGIC
     Dosage: UNK
  5. CALCIUM [Concomitant]
     Active Substance: CALCIUM
     Indication: NAIL GROWTH ABNORMAL
     Dosage: UNK
  6. FLOVENT [Concomitant]
     Active Substance: FLUTICASONE PROPIONATE
     Indication: ASTHMA
     Dosage: UNK
  7. MULTIVITAMINS [Concomitant]
     Active Substance: VITAMINS
     Indication: SUPPLEMENTATION THERAPY
     Dosage: UNK
  8. LEVAQUIN [Concomitant]
     Active Substance: LEVOFLOXACIN
     Indication: RHINITIS ALLERGIC
     Dosage: UNK, PRN
  9. ALBUTEROL HFA [Concomitant]
     Active Substance: ALBUTEROL SULFATE
     Indication: ASTHMA
     Dosage: UNK
  10. ARGININE                           /00126102/ [Concomitant]
     Indication: SUPPLEMENTATION THERAPY
     Dosage: UNK
  11. PREDNISONE. [Concomitant]
     Active Substance: PREDNISONE
     Indication: RHINITIS ALLERGIC
     Dosage: UNK
  12. ASPIRIN                            /00002701/ [Concomitant]
     Active Substance: ASPIRIN
     Indication: CARDIAC FAILURE CONGESTIVE
     Dosage: UNK
  13. IMODIUM [Concomitant]
     Active Substance: LOPERAMIDE HYDROCHLORIDE
     Indication: PROPHYLAXIS AGAINST DIARRHOEA
     Dosage: UNK
  14. FLOMAX [Concomitant]
     Active Substance: TAMSULOSIN HYDROCHLORIDE
     Indication: NEPHROLITHIASIS
     Dosage: UNK
  15. TYLENOL [Concomitant]
     Active Substance: ACETAMINOPHEN
     Indication: PAIN PROPHYLAXIS
     Dosage: UNK
  16. HYDROCORTISONE. [Concomitant]
     Active Substance: HYDROCORTISONE
     Indication: HERPES ZOSTER
     Dosage: UNK
  17. IBUPROFEN. [Concomitant]
     Active Substance: IBUPROFEN
     Indication: HERNIA PAIN
     Dosage: UNK
  18. POTASSIUM CHLORIDE. [Concomitant]
     Active Substance: POTASSIUM CHLORIDE
     Indication: CARDIAC FAILURE CONGESTIVE
     Dosage: UNK
  19. TORSEMIDE. [Concomitant]
     Active Substance: TORSEMIDE
     Indication: CARDIAC FAILURE CONGESTIVE
     Dosage: UNK

REACTIONS (1)
  - Drug ineffective [Unknown]
